FAERS Safety Report 5421935-7 (Version None)
Quarter: 2007Q3

REPORT INFORMATION
  Report Type: 
  Country: None (occurrence: None)
  Receive Date: 20070822
  Receipt Date: 20070815
  Transmission Date: 20080115
  Serious: Yes (Hospitalization)
  Sender: FDA-Public Use
  Company Number: US-JNJFOC-20070803492

PATIENT
  Sex: Female

DRUGS (4)
  1. SPORANOX [Suspect]
     Indication: DRUG USE FOR UNKNOWN INDICATION
     Route: 065
  2. CALCIUM CARBONATE AND VITAMIN D [Suspect]
     Indication: MINERAL SUPPLEMENTATION
     Route: 065
  3. IBUPROFEN [Concomitant]
     Route: 065
  4. LEVOTHYROXINE SODIUM [Concomitant]
     Route: 065

REACTIONS (2)
  - CHOLELITHIASIS [None]
  - YELLOW SKIN [None]
